FAERS Safety Report 15908219 (Version 1)
Quarter: 2019Q1

REPORT INFORMATION
  Report Type: Spontaneous
  Country: US (occurrence: US)
  Receive Date: 20190204
  Receipt Date: 20190204
  Transmission Date: 20190417
  Serious: Yes (Death)
  Sender: FDA-Public Use
  Company Number: US-TEVA-2019-US-1006009

PATIENT
  Sex: Female

DRUGS (1)
  1. FENTANYL TRANSDERMAL SYSTEM [Suspect]
     Active Substance: FENTANYL
     Dosage: DOSE STRENGTH:  50 MCG/HR
     Route: 065

REACTIONS (1)
  - Neoplasm malignant [Fatal]

NARRATIVE: CASE EVENT DATE: 2015
